FAERS Safety Report 8460186-9 (Version None)
Quarter: 2012Q2

REPORT INFORMATION
  Report Type: 
  Country: None (occurrence: None)
  Receive Date: 20120622
  Receipt Date: 20120612
  Transmission Date: 20120825
  Serious: Yes (Other)
  Sender: FDA-Public Use
  Company Number: US-ABBOTT-12P-163-0945798-00

PATIENT
  Age: 47 Year
  Sex: Female

DRUGS (6)
  1. HUMIRA [Suspect]
     Dates: start: 20100101
  2. VITAMIN D [Concomitant]
     Indication: PRODUCT USED FOR UNKNOWN INDICATION
  3. UNKNOWN ANTIBIOTIC [Suspect]
     Indication: CELLULITIS
  4. FOLIC ACID [Concomitant]
     Indication: PRODUCT USED FOR UNKNOWN INDICATION
  5. HUMIRA [Suspect]
     Indication: RHEUMATOID ARTHRITIS
     Dates: start: 20070101
  6. CLINDAMYCIN [Suspect]
     Indication: CELLULITIS

REACTIONS (12)
  - DIABETIC NEUROPATHY [None]
  - BLOOD CHOLESTEROL INCREASED [None]
  - GASTROOESOPHAGEAL REFLUX DISEASE [None]
  - JOINT LOCK [None]
  - RHEUMATOID ARTHRITIS [None]
  - BIPOLAR DISORDER [None]
  - CELLULITIS [None]
  - TYPE 1 DIABETES MELLITUS [None]
  - JOINT EFFUSION [None]
  - DIARRHOEA [None]
  - BLADDER DISORDER [None]
  - INJECTION SITE PAIN [None]
